FAERS Safety Report 15723243 (Version 1)
Quarter: 2018Q4

REPORT INFORMATION
  Report Type: Spontaneous
  Country: ES (occurrence: ES)
  Receive Date: 20181214
  Receipt Date: 20181214
  Transmission Date: 20190205
  Serious: Yes (Hospitalization)
  Sender: FDA-Public Use
  Company Number: ES-MYLANLABS-2018M1092367

PATIENT
  Age: 35 Year
  Sex: Male

DRUGS (6)
  1. PREDNISONA [Concomitant]
     Active Substance: PREDNISONE
     Dosage: UNK(5 MG DIA)
     Route: 048
     Dates: start: 20160617
  2. MYFORTIC [Concomitant]
     Active Substance: MYCOPHENOLATE SODIUM
     Dosage: 360 MILLIGRAM, BID(360 MG DE Y CE)
     Route: 048
     Dates: start: 20160617
  3. TACROLIMUS. [Suspect]
     Active Substance: TACROLIMUS
     Indication: RENAL TRANSPLANT
     Dosage: 10 MILLIGRAM, QD(10 MG DIA)
     Route: 048
     Dates: start: 20150630, end: 20170915
  4. ADIRO [Concomitant]
     Active Substance: ASPIRIN
     Dosage: UNK(0-1-0)
     Route: 048
     Dates: start: 20160617
  5. CARDURAN NEO [Concomitant]
     Active Substance: DOXAZOSIN MESYLATE
     Dosage: UNK(4 MG DIA)
     Route: 048
     Dates: start: 20160923
  6. CARVEDILOL. [Concomitant]
     Active Substance: CARVEDILOL
     Dosage: UNK(6,25 MG DIA)
     Route: 048
     Dates: start: 20160617

REACTIONS (1)
  - Thrombotic microangiopathy [Recovered/Resolved]

NARRATIVE: CASE EVENT DATE: 20170915
